FAERS Safety Report 10598505 (Version 1)
Quarter: 2014Q4

REPORT INFORMATION
  Report Type: Spontaneous
  Country: US (occurrence: None)
  Receive Date: 20141119
  Receipt Date: 20141119
  Transmission Date: 20150529
  Serious: No
  Sender: FDA-Public Use
  Company Number: 1000071558

PATIENT
  Age: 61 Year
  Sex: Male

DRUGS (2)
  1. XOPENEX (LEVOSALBUTAMOL HYDORCHLORIDE) (LEVOSALBUTAMOL HYDROCHLORIDE) [Concomitant]
  2. TUDORZA PRESSAIR [Suspect]
     Active Substance: ACLIDINIUM BROMIDE
     Indication: CHRONIC OBSTRUCTIVE PULMONARY DISEASE
     Dosage: 800MCG (400 MCG, 2 IN 1 D), RESPIRATORY (INHALATION)?
     Route: 055
     Dates: start: 2013

REACTIONS (2)
  - Pain [None]
  - Unevaluable event [None]

NARRATIVE: CASE EVENT DATE: 201410
